FAERS Safety Report 25886189 (Version 1)
Quarter: 2025Q4

REPORT INFORMATION
  Report Type: Spontaneous
  Country: US (occurrence: US)
  Receive Date: 20251006
  Receipt Date: 20251006
  Transmission Date: 20260118
  Serious: Yes (Other)
  Sender: ROCHE
  Company Number: US-ROCHE-10000401819

PATIENT
  Sex: Female

DRUGS (2)
  1. OCREVUS [Suspect]
     Active Substance: OCRELIZUMAB
     Indication: Relapsing-remitting multiple sclerosis
     Route: 065
     Dates: start: 202202, end: 20250317
  2. WEGOVY [Concomitant]
     Active Substance: SEMAGLUTIDE

REACTIONS (3)
  - Proctitis [Unknown]
  - Ulcer [Unknown]
  - Anal abscess [Unknown]
